FAERS Safety Report 7004003-2 (Version None)
Quarter: 2010Q3

REPORT INFORMATION
  Report Type: 
  Country: None (occurrence: None)
  Receive Date: 20100920
  Receipt Date: 20100108
  Transmission Date: 20110219
  Serious: No
  Sender: FDA-Public Use
  Company Number: US-WYE-H12954610

PATIENT
  Sex: Female

DRUGS (6)
  1. PRISTIQ [Suspect]
     Indication: DEPRESSION
     Route: 048
     Dates: start: 20091001
  2. LORAZEPAM [Concomitant]
  3. ATENOLOL [Concomitant]
  4. FOLIC ACID [Concomitant]
  5. CRESTOR [Concomitant]
  6. WARFARIN SODIUM [Concomitant]

REACTIONS (3)
  - MALAISE [None]
  - NAIL DISCOLOURATION [None]
  - RASH ERYTHEMATOUS [None]
